FAERS Safety Report 8185403-4 (Version None)
Quarter: 2012Q1

REPORT INFORMATION
  Report Type: 
  Country: None (occurrence: None)
  Receive Date: 20120305
  Receipt Date: 20120229
  Transmission Date: 20120608
  Serious: Yes (Death)
  Sender: FDA-Public Use
  Company Number: PHHY2012HU017692

PATIENT
  Sex: Female

DRUGS (2)
  1. SANDOSTATIN LAR [Suspect]
     Indication: PANCREATIC NEUROENDOCRINE TUMOUR
     Dosage: 20 MG, UNK
     Dates: start: 20100301
  2. SANDOSTATIN LAR [Suspect]
     Dosage: 30 MG, UNK
     Dates: start: 20100402

REACTIONS (1)
  - PULMONARY EMBOLISM [None]
